FAERS Safety Report 4783968-3 (Version None)
Quarter: 2005Q3

REPORT INFORMATION
  Report Type: 
  Country: None (occurrence: None)
  Receive Date: 20050927
  Receipt Date: 20050803
  Transmission Date: 20060218
  Serious: No
  Sender: FDA-Public Use
  Company Number: USA0508104526

PATIENT
  Age: 7 Year
  Sex: Male
  Weight: 30 kg

DRUGS (1)
  1. STRATTERA [Suspect]
     Dosage: 36 MG
     Dates: start: 20040701

REACTIONS (2)
  - BUCCOGLOSSAL SYNDROME [None]
  - REPETITIVE SPEECH [None]
